FAERS Safety Report 19509597 (Version 1)
Quarter: 2021Q3

REPORT INFORMATION
  Report Type: Spontaneous
  Country: GB (occurrence: GB)
  Receive Date: 20210708
  Receipt Date: 20210708
  Transmission Date: 20211014
  Serious: Yes (Life-Threatening)
  Sender: FDA-Public Use
  Company Number: GB-TEVA-2021-GB-1928689

PATIENT
  Age: 31 Year
  Sex: Male
  Weight: 100 kg

DRUGS (2)
  1. LEVOTHYROXINE. [Suspect]
     Active Substance: LEVOTHYROXINE
     Dosage: 100MG INCREASED TO 150MG
     Route: 048
     Dates: start: 20210305, end: 20210327
  2. LEVOTHYROXINE. [Suspect]
     Active Substance: LEVOTHYROXINE
     Indication: HYPOTHYROIDISM
     Dosage: 100MG
     Route: 048
     Dates: start: 20210305, end: 20210327

REACTIONS (14)
  - Urinary incontinence [Recovered/Resolved]
  - Medication error [Unknown]
  - Confusional state [Recovered/Resolved]
  - Feeding disorder [Unknown]
  - Muscle twitching [Recovered/Resolved]
  - Seizure [Unknown]
  - Adverse drug reaction [Recovered/Resolved with Sequelae]
  - Chest pain [Recovered/Resolved]
  - Dysarthria [Recovered/Resolved]
  - Adverse drug reaction [Unknown]
  - Adverse drug reaction [Recovered/Resolved]
  - Myalgia [Recovered/Resolved]
  - Gait inability [Recovered/Resolved]
  - Dermatitis allergic [Recovered/Resolved]

NARRATIVE: CASE EVENT DATE: 20210305
